FAERS Safety Report 8255373-9 (Version None)
Quarter: 2012Q2

REPORT INFORMATION
  Report Type: 
  Country: None (occurrence: None)
  Receive Date: 20120403
  Receipt Date: 20120327
  Transmission Date: 20120825
  Serious: Yes (Other)
  Sender: FDA-Public Use
  Company Number: GB-ROXANE LABORATORIES, INC.-2012-RO-00906RO

PATIENT
  Age: 84 Year
  Sex: Female

DRUGS (7)
  1. AMLODIPINE [Suspect]
  2. ASPIRIN [Suspect]
  3. DONEPEZIL HCL [Suspect]
     Indication: SENILE DEMENTIA
  4. LISINOPRIL [Suspect]
  5. LANSOPRAZOLE [Suspect]
  6. FLUTICASONE AND SALMETEROL [Suspect]
     Route: 055
  7. ALBUTEROL [Suspect]
     Route: 055

REACTIONS (1)
  - LINEAR IGA DISEASE [None]
